FAERS Safety Report 8066523-1 (Version None)
Quarter: 2012Q1

REPORT INFORMATION
  Report Type: 
  Country: None (occurrence: None)
  Receive Date: 20120117
  Receipt Date: 20120103
  Transmission Date: 20120608
  Serious: Yes (Other)
  Sender: FDA-Public Use
  Company Number: 2012P1000571

PATIENT
  Age: 64 Year
  Sex: Female

DRUGS (7)
  1. VENLAFAXINE HCL EXTENDED-RELEASE [Concomitant]
  2. IRINOTECAN HCL [Concomitant]
  3. ETIDRONATE AND CALCIUM CARBONATE [Concomitant]
  4. LEUCOVORIN CALCIUM [Concomitant]
  5. DOCUSATE SODIUM [Concomitant]
  6. FLUOROURACIL [Suspect]
     Indication: CHEMOTHERAPY
  7. PHENYTOIN [Suspect]
     Indication: EPILEPSY
     Dosage: 200 MG; TID; PO
     Route: 048

REACTIONS (10)
  - ANTICONVULSANT DRUG LEVEL BELOW THERAPEUTIC [None]
  - BALANCE DISORDER [None]
  - TOXICITY TO VARIOUS AGENTS [None]
  - DIZZINESS [None]
  - ANTICONVULSANT DRUG LEVEL ABOVE THERAPEUTIC [None]
  - DRUG INTERACTION [None]
  - HYPERREFLEXIA [None]
  - GAIT DISTURBANCE [None]
  - SOMNOLENCE [None]
  - ATAXIA [None]
